FAERS Safety Report 5712068-0 (Version None)
Quarter: 2008Q2

REPORT INFORMATION
  Report Type: 
  Country: None (occurrence: None)
  Receive Date: 20080418
  Receipt Date: 20080404
  Transmission Date: 20081010
  Serious: Yes (Hospitalization, Other)
  Sender: FDA-Public Use
  Company Number: 2008S1004369

PATIENT
  Age: 8 Year
  Sex: Female

DRUGS (1)
  1. ALBUTEROL [Suspect]
     Indication: ASTHMA
     Dosage: 0.5 MG/KG; INHALATION
     Route: 055

REACTIONS (19)
  - BLOOD PRESSURE DECREASED [None]
  - CHEST PAIN [None]
  - CONDITION AGGRAVATED [None]
  - COUGH [None]
  - DYSPNOEA [None]
  - HEART RATE INCREASED [None]
  - HYPERGLYCAEMIA [None]
  - INTERCOSTAL RETRACTION [None]
  - METABOLIC ACIDOSIS [None]
  - MUCOSAL DRYNESS [None]
  - NASAL FLARING [None]
  - NO THERAPEUTIC RESPONSE [None]
  - POLYURIA [None]
  - PROLONGED EXPIRATION [None]
  - PYREXIA [None]
  - RESPIRATORY DISTRESS [None]
  - RESPIRATORY RATE INCREASED [None]
  - SOMNOLENCE [None]
  - WHEEZING [None]
